FAERS Safety Report 5132971-2 (Version None)
Quarter: 2006Q4

REPORT INFORMATION
  Report Type: 
  Country: None (occurrence: None)
  Receive Date: 20061023
  Receipt Date: 20061013
  Transmission Date: 20070319
  Serious: Yes (Other)
  Sender: FDA-Public Use
  Company Number: 2006UW19890

PATIENT
  Age: 54 Year
  Sex: Male

DRUGS (3)
  1. SEROQUEL [Suspect]
     Indication: POST-TRAUMATIC STRESS DISORDER
     Route: 048
     Dates: end: 20060101
  2. CHEMOTHERAPY [Concomitant]
  3. RADIATION THERAPY [Concomitant]

REACTIONS (2)
  - DIABETES MELLITUS [None]
  - SMALL INTESTINE CARCINOMA [None]
